FAERS Safety Report 10738499 (Version 1)
Quarter: 2015Q1

REPORT INFORMATION
  Report Type: Spontaneous
  Country: IT (occurrence: IT)
  Receive Date: 20150126
  Receipt Date: 20150126
  Transmission Date: 20150721
  Serious: Yes (Hospitalization)
  Sender: FDA-Public Use
  Company Number: IT-GILEAD-2014-0112132

PATIENT
  Age: 2 Year
  Sex: Female

DRUGS (1)
  1. TRUVADA [Suspect]
     Active Substance: EMTRICITABINE\TENOFOVIR DISOPROXIL FUMARATE
     Indication: ACCIDENTAL EXPOSURE TO PRODUCT BY CHILD
     Dosage: 100 MG, ONCE
     Route: 048
     Dates: start: 20140628, end: 20140628

REACTIONS (2)
  - Accidental exposure to product [Unknown]
  - Vomiting [Unknown]

NARRATIVE: CASE EVENT DATE: 20140628
